FAERS Safety Report 7025566-7 (Version None)
Quarter: 2010Q4

REPORT INFORMATION
  Report Type: 
  Country: None (occurrence: None)
  Receive Date: 20101003
  Receipt Date: 20100924
  Transmission Date: 20110411
  Serious: Yes (Other)
  Sender: FDA-Public Use
  Company Number: PHHY2010PK63682

PATIENT
  Age: 62 Year
  Sex: Female
  Weight: 74 kg

DRUGS (5)
  1. ACLASTA [Suspect]
     Indication: OSTEOPOROSIS
     Dosage: 5 MG
     Route: 042
     Dates: start: 20091008
  2. BISPHOSPHONATES [Concomitant]
  3. FEMARA [Concomitant]
     Indication: BREAST CANCER
  4. GETRIL [Concomitant]
     Indication: DIABETES MELLITUS
  5. ANTIHYPERTENSIVES [Concomitant]

REACTIONS (6)
  - BURNING SENSATION [None]
  - OCULAR HYPERAEMIA [None]
  - PRURITUS [None]
  - PYREXIA [None]
  - RASH [None]
  - WRIST FRACTURE [None]
